FAERS Safety Report 24334595 (Version 2)
Quarter: 2024Q4

REPORT INFORMATION
  Report Type: Report from Study
  Country: US (occurrence: US)
  Receive Date: 20240918
  Receipt Date: 20241016
  Transmission Date: 20250114
  Serious: No
  Sender: SUNOVION
  Company Number: US-SUMITOMO PHARMA SWITZERLAND GMBH-2024SPA001787

PATIENT

DRUGS (4)
  1. ORGOVYX [Suspect]
     Active Substance: RELUGOLIX
     Indication: Prostate cancer
     Dosage: 360 MG
     Route: 048
  2. ORGOVYX [Suspect]
     Active Substance: RELUGOLIX
     Dosage: 120 MG, QD
     Route: 048
     Dates: start: 20240810
  3. INFLUENZA VIRUS VACCINE [Concomitant]
     Active Substance: INFLUENZA VIRUS VACCINE
     Dosage: SHOT
     Route: 065
     Dates: start: 20241001
  4. COVID-19 vaccine [Concomitant]
     Dosage: SHOT
     Dates: start: 20241001

REACTIONS (5)
  - Cold sweat [Unknown]
  - Urinary incontinence [Unknown]
  - Bladder disorder [Unknown]
  - Blood glucose increased [Unknown]
  - Hot flush [Unknown]

NARRATIVE: CASE EVENT DATE: 20241001
